FAERS Safety Report 23874120 (Version 1)
Quarter: 2024Q2

REPORT INFORMATION
  Report Type: Report from Study
  Country: US (occurrence: US)
  Receive Date: 20240520
  Receipt Date: 20240520
  Transmission Date: 20240716
  Serious: Yes (Other)
  Sender: FDA-Public Use
  Company Number: US-EXELIXIS-CABO-24073617

PATIENT
  Sex: Female

DRUGS (16)
  1. CABOMETYX [Suspect]
     Active Substance: CABOZANTINIB S-MALATE
     Indication: Renal cancer
     Dosage: 60 MG, QD
     Route: 048
     Dates: start: 20240113
  2. GLIPIZIDE [Suspect]
     Active Substance: GLIPIZIDE
     Indication: Product used for unknown indication
     Dosage: 5 MG
  3. ACTOS [Concomitant]
     Active Substance: PIOGLITAZONE HYDROCHLORIDE
  4. ASPIRIN [Concomitant]
     Active Substance: ASPIRIN
  5. CALCIUM\VITAMIN D [Concomitant]
     Active Substance: CALCIUM\VITAMIN D
  6. VITAMINS [Concomitant]
     Active Substance: VITAMINS
  7. DIAZEPAM [Concomitant]
     Active Substance: DIAZEPAM
  8. FENOFIBRATE [Concomitant]
     Active Substance: FENOFIBRATE
  9. ONDANSETRON [Concomitant]
     Active Substance: ONDANSETRON
  10. PROAIR DIGIHALER [Concomitant]
     Active Substance: ALBUTEROL SULFATE
  11. PROCHLORPERAZINE [Concomitant]
     Active Substance: PROCHLORPERAZINE
  12. AMLODIPINE AND OLMESARTAN MEDOXOMIL [Concomitant]
     Active Substance: AMLODIPINE BESYLATE\OLMESARTAN MEDOXOMIL
  13. FEBUXOSTAT [Concomitant]
     Active Substance: FEBUXOSTAT
  14. HYDRALAZINE [Concomitant]
     Active Substance: HYDRALAZINE HYDROCHLORIDE
  15. JARDIANCE [Concomitant]
     Active Substance: EMPAGLIFLOZIN
  16. TOUJEO [Concomitant]
     Active Substance: INSULIN GLARGINE

REACTIONS (11)
  - Cataract [Not Recovered/Not Resolved]
  - Parosmia [Not Recovered/Not Resolved]
  - Blood pressure increased [Unknown]
  - Back pain [Not Recovered/Not Resolved]
  - Diarrhoea [Recovering/Resolving]
  - Constipation [Unknown]
  - Nausea [Not Recovered/Not Resolved]
  - Fatigue [Not Recovered/Not Resolved]
  - Decreased appetite [Not Recovered/Not Resolved]
  - Blood glucose decreased [Unknown]
  - Wound infection [Not Recovered/Not Resolved]
